FAERS Safety Report 17270386 (Version 1)
Quarter: 2020Q1

REPORT INFORMATION
  Report Type: Spontaneous
  Country: FR (occurrence: FR)
  Receive Date: 20200114
  Receipt Date: 20200114
  Transmission Date: 20200409
  Serious: Yes (Hospitalization)
  Sender: FDA-Public Use
  Company Number: FR-MYLANLABS-2020M1003849

PATIENT
  Age: 53 Year
  Sex: Male
  Weight: 79 kg

DRUGS (18)
  1. OXYNORMORO [Suspect]
     Active Substance: OXYCODONE HYDROCHLORIDE
     Indication: ANALGESIC INTERVENTION SUPPORTIVE THERAPY
     Dosage: 5 MILLIGRAM, PRN
     Route: 048
  2. SITAGLIPTINE [Suspect]
     Active Substance: SITAGLIPTIN
     Indication: DIABETES MELLITUS
     Dosage: 1-1-0/ 100 MG, QD
     Route: 048
     Dates: end: 20191004
  3. HYDROCHLOROTHIAZIDE. [Suspect]
     Active Substance: HYDROCHLOROTHIAZIDE
     Indication: HYPERTENSION
     Dosage: 1-0-0, 25 MG, QD
     Route: 048
  4. ONDANSETRON ACCORD [Suspect]
     Active Substance: ONDANSETRON
     Indication: ANTIEMETIC SUPPORTIVE CARE
     Dosage: A J1, J2 ET J3/1 DF FORM EVERY 1 CYCLE(S)
     Route: 042
     Dates: start: 20190923, end: 20190925
  5. FUROSEMIDE. [Concomitant]
     Active Substance: FUROSEMIDE
     Indication: HYPERTENSION
     Dosage: 1-0-0/ 1 DF, QD
     Route: 048
  6. TECENTRIQ [Concomitant]
     Active Substance: ATEZOLIZUMAB
     Indication: BRONCHIAL CARCINOMA
     Dosage: 1200MG ? J1
     Route: 042
     Dates: start: 20190923, end: 20190923
  7. APREPITANT. [Suspect]
     Active Substance: APREPITANT
     Indication: ANTIEMETIC SUPPORTIVE CARE
     Dosage: 125MG ? J1, 80MG J2-J3
     Route: 048
     Dates: start: 20190923, end: 20190925
  8. CARBOPLATIN ACCORD [Suspect]
     Active Substance: CARBOPLATIN
     Indication: BRONCHIAL CARCINOMA
     Dosage: AUC 5 SOIT 579MG ? J1
     Route: 042
     Dates: start: 20190923, end: 20190923
  9. TOUJEO [Concomitant]
     Active Substance: INSULIN GLARGINE
     Indication: DIABETES MELLITUS
     Dosage: 60UI-0-0, 60 IU, QD
     Route: 048
  10. CANDESARTAN. [Suspect]
     Active Substance: CANDESARTAN
     Indication: HYPERTENSION
     Dosage: 2-0-0, 16 MG, QD
     Route: 048
  11. OXYCODONE [Suspect]
     Active Substance: OXYCODONE
     Indication: ANALGESIC INTERVENTION SUPPORTIVE THERAPY
     Dosage: 1-0-1, 60 MG, QD
     Route: 048
  12. METOCLOPRAMIDE. [Suspect]
     Active Substance: METOCLOPRAMIDE
     Indication: ANTIEMETIC SUPPORTIVE CARE
     Dosage: SI BESOIN, MAX = 3/J/ 10 MG, PRN
     Route: 048
  13. ZOPICLONE [Concomitant]
     Active Substance: ZOPICLONE
     Indication: INSOMNIA
     Dosage: 0-0-0-1, 7.5 MG, QD
     Route: 048
  14. GLIBENCLAMIDE [Concomitant]
     Active Substance: GLYBURIDE
     Indication: DIABETES MELLITUS
     Dosage: 1-0-0, 5 MG, QD
     Route: 048
     Dates: end: 20191004
  15. PARACETAMOL [Concomitant]
     Active Substance: ACETAMINOPHEN
     Indication: ANALGESIC INTERVENTION SUPPORTIVE THERAPY
     Dosage: 1-1-1/3 G, QD
     Route: 048
  16. PREGABALIN. [Suspect]
     Active Substance: PREGABALIN
     Indication: ANALGESIC INTERVENTION SUPPORTIVE THERAPY
     Dosage: 1-0-1/100 MG, QD
     Route: 048
  17. METFORMINE                         /00082701/ [Concomitant]
     Active Substance: METFORMIN HYDROCHLORIDE
     Indication: DIABETES MELLITUS
     Dosage: 0-1-0/700 MG, QD
     Route: 048
  18. ETOPOSIDE. [Suspect]
     Active Substance: ETOPOSIDE
     Indication: BRONCHIAL CARCINOMA
     Dosage: 100MG/M? SOIT 195 MG DE J1 ? J3
     Route: 042
     Dates: start: 20190923, end: 20190925

REACTIONS (2)
  - Oedema peripheral [Recovering/Resolving]
  - Subileus [Recovered/Resolved]

NARRATIVE: CASE EVENT DATE: 20190925
